FAERS Safety Report 7647655-6 (Version None)
Quarter: 2011Q3

REPORT INFORMATION
  Report Type: 
  Country: None (occurrence: None)
  Receive Date: 20110801
  Receipt Date: 20110801
  Transmission Date: 20111222
  Serious: Yes (Other)
  Sender: FDA-Public Use
  Company Number: None

PATIENT

DRUGS (1)
  1. TOP CARE EYE DROPS (OTC) [Suspect]
     Indication: ASTHENOPIA
     Dosage: 1 DROP
     Route: 061
     Dates: start: 20110713, end: 20110713

REACTIONS (6)
  - EYE IRRITATION [None]
  - PHOTOPHOBIA [None]
  - VISUAL IMPAIRMENT [None]
  - EYELID OEDEMA [None]
  - SWELLING FACE [None]
  - FOREIGN BODY SENSATION IN EYES [None]
